FAERS Safety Report 5876368-6 (Version None)
Quarter: 2008Q3

REPORT INFORMATION
  Report Type: 
  Country: None (occurrence: None)
  Receive Date: 20080909
  Receipt Date: 20080909
  Transmission Date: 20090109
  Serious: Yes (Other)
  Sender: FDA-Public Use
  Company Number: None

PATIENT
  Sex: Female
  Weight: 79.3795 kg

DRUGS (1)
  1. SEASONIQUE [Suspect]
     Indication: CONTRACEPTION
     Dosage: PACKAGE RECOMMENDED DOSAGES ONCE A DAY
     Dates: start: 20070925, end: 20080615

REACTIONS (5)
  - ARTHROPATHY [None]
  - IMPAIRED HEALING [None]
  - JOINT INJURY [None]
  - LIMB INJURY [None]
  - WHITE BLOOD CELL COUNT INCREASED [None]
